FAERS Safety Report 13383966 (Version 1)
Quarter: 2017Q1

REPORT INFORMATION
  Report Type: Spontaneous
  Country: JP (occurrence: JP)
  Receive Date: 20170329
  Receipt Date: 20170329
  Transmission Date: 20170429
  Serious: Yes (Hospitalization)
  Sender: FDA-Public Use
  Company Number: JP-JNJFOC-20170323775

PATIENT
  Age: 9 Decade
  Sex: Male

DRUGS (2)
  1. TRAMCET [Suspect]
     Active Substance: ACETAMINOPHEN\TRAMADOL
     Indication: PAIN
     Route: 048
     Dates: start: 201703
  2. LYRICA [Concomitant]
     Active Substance: PREGABALIN
     Route: 048

REACTIONS (3)
  - Oedema [Recovering/Resolving]
  - Hospitalisation [Unknown]
  - Bradykinesia [Unknown]

NARRATIVE: CASE EVENT DATE: 201703
